FAERS Safety Report 19845465 (Version 1)
Quarter: 2021Q3

REPORT INFORMATION
  Report Type: Spontaneous
  Country: US (occurrence: US)
  Receive Date: 20210916
  Receipt Date: 20210916
  Transmission Date: 20211014
  Serious: Yes (Hospitalization, Other)
  Sender: FDA-Public Use
  Company Number: US-UPSHER-SMITH LABORATORIES, LLC-2021USL00633

PATIENT
  Age: 53 Year
  Sex: Female
  Weight: 93.42 kg

DRUGS (13)
  1. AMIODARONE HYDROCHLORIDE. [Suspect]
     Active Substance: AMIODARONE HYDROCHLORIDE
     Dosage: 200 MG, 1X/DAY
     Route: 048
     Dates: end: 2015
  2. AMIODARONE HYDROCHLORIDE. [Suspect]
     Active Substance: AMIODARONE HYDROCHLORIDE
     Dosage: 400 MG, 2X/DAY
     Route: 048
     Dates: start: 20130319
  3. AMIODARONE HYDROCHLORIDE. [Suspect]
     Active Substance: AMIODARONE HYDROCHLORIDE
     Indication: VENTRICULAR TACHYCARDIA
     Dosage: BOLUS
     Route: 042
     Dates: start: 20101014, end: 20101014
  4. AMIODARONE HYDROCHLORIDE. [Suspect]
     Active Substance: AMIODARONE HYDROCHLORIDE
     Indication: VENTRICULAR TACHYCARDIA
     Dosage: 400 MG, 3X/DAY
     Route: 048
     Dates: start: 20101017, end: 20101021
  5. METFORMIN [Concomitant]
     Active Substance: METFORMIN HYDROCHLORIDE
     Dosage: 1000 MG, 1X/DAY
  6. AMIODARONE HYDROCHLORIDE. [Suspect]
     Active Substance: AMIODARONE HYDROCHLORIDE
     Indication: CARDIAC FIBRILLATION
     Dosage: 400 MG, 1X/DAY
     Route: 048
     Dates: start: 20101022
  7. LISINOPRIL. [Concomitant]
     Active Substance: LISINOPRIL
     Dosage: 5 MG, 1X/DAY
  8. AMIODARONE HYDROCHLORIDE. [Suspect]
     Active Substance: AMIODARONE HYDROCHLORIDE
     Dosage: 200 MG, 1X/DAY AT BEDTIME
     Route: 048
     Dates: end: 2011
  9. SIMVASTATIN. [Concomitant]
     Active Substance: SIMVASTATIN
     Dosage: 20 MG, 1X/DAY
     Route: 048
  10. PRAVACHOL [Concomitant]
     Active Substance: PRAVASTATIN SODIUM
     Dosage: 80 MG, 1X/DAY AT BEDTIME
     Route: 048
     Dates: start: 201010
  11. METFORMIN [Concomitant]
     Active Substance: METFORMIN HYDROCHLORIDE
     Dosage: 1000 MG, 2X/DAY
     Route: 048
  12. TYLENOL ARTHRITIS PAIN [Concomitant]
     Active Substance: ACETAMINOPHEN
     Dosage: 650 MG, 1X/DAY IN THE MORNING AS NEEDED FOR ARTHRITIS
     Route: 048
  13. ACTOS [Concomitant]
     Active Substance: PIOGLITAZONE HYDROCHLORIDE
     Dosage: 15 MG, 1X/DAY
     Route: 048

REACTIONS (38)
  - Therapeutic product effect incomplete [Unknown]
  - Productive cough [Unknown]
  - Poor quality sleep [Unknown]
  - Sneezing [Unknown]
  - Supraventricular extrasystoles [Unknown]
  - Limb discomfort [Unknown]
  - Lung disorder [Unknown]
  - Sleep disorder [Unknown]
  - Electrocardiogram QRS complex shortened [Unknown]
  - Oedema peripheral [Unknown]
  - Malaise [Unknown]
  - Pruritus [Unknown]
  - Electrocardiogram QT prolonged [Unknown]
  - Influenza [Unknown]
  - Orthopnoea [Unknown]
  - Dysuria [Unknown]
  - Fatigue [Unknown]
  - Palpitations [Unknown]
  - Pollakiuria [Unknown]
  - Chest pain [Unknown]
  - Dizziness [Unknown]
  - Exercise tolerance decreased [Unknown]
  - Spinal osteoarthritis [Unknown]
  - Dizziness postural [Unknown]
  - Diarrhoea [Unknown]
  - Dyspnoea exertional [Unknown]
  - Varicose vein [Unknown]
  - Electrocardiogram T wave abnormal [Unknown]
  - Thyroid mass [Unknown]
  - Ventricular extrasystoles [Unknown]
  - Cough [Unknown]
  - Abdominal pain [Unknown]
  - Electrocardiogram repolarisation abnormality [Unknown]
  - Hyperthyroidism [Unknown]
  - Upper respiratory tract infection [Unknown]
  - Back pain [Unknown]
  - Paranasal sinus discomfort [Unknown]
  - Visual impairment [Unknown]

NARRATIVE: CASE EVENT DATE: 20110110
